FAERS Safety Report 8886420 (Version 3)
Quarter: 2013Q2

REPORT INFORMATION
  Report Type: Spontaneous
  Country: US (occurrence: US)
  Receive Date: 20121105
  Receipt Date: 20130611
  Transmission Date: 20140414
  Serious: No
  Sender: FDA-Public Use
  Company Number: US-PFIZER INC-2012272346

PATIENT
  Age: 78 Year
  Sex: Female
  Weight: 72.11 kg

DRUGS (23)
  1. INLYTA [Suspect]
     Indication: RENAL CANCER STAGE IV
     Dosage: 5 MG, 2X/DAY
     Dates: start: 20120922, end: 20121021
  2. INLYTA [Suspect]
     Indication: RENAL CANCER STAGE IV
     Dosage: 5 MG, 2X/DAY
     Route: 048
     Dates: start: 20121001
  3. INLYTA [Suspect]
     Dosage: 7 MG, 2X/DAY
     Route: 048
     Dates: end: 201211
  4. INLYTA [Suspect]
     Dosage: 10 MG, 2X/DAY
     Route: 048
     Dates: start: 201211, end: 20130604
  5. METFORMIN [Concomitant]
     Indication: TYPE 2 DIABETES MELLITUS
     Dosage: 1000 MG, 2X/DAY
  6. CITALOPRAM HYDROBROMIDE [Concomitant]
     Indication: DEPRESSION
     Dosage: 40 MG,DAILY
  7. BUPROPION HYDROCHLORIDE [Concomitant]
     Dosage: 100 MG, 1 DAILY
     Route: 048
  8. AMLODIPINE BESILATE [Concomitant]
     Dosage: 10 MG, 1/2 ORAL DAILY
     Route: 048
  9. CALCIUM WITH VITAMIN D [Concomitant]
     Dosage: UNK, 1 TABLET 2 TIMES DAILY
     Route: 048
  10. OMEPRAZOLE [Concomitant]
     Dosage: 20 MG, 1 DAILY
     Route: 048
  11. MECLIZINE HYDROCHLORIDE [Concomitant]
     Dosage: 25 MG, 1 AS NEEDED
     Route: 048
  12. OXYCODONE HYDROCHLORIDE [Concomitant]
     Indication: PAIN
     Dosage: 5 MG, Q6 HRS
     Route: 048
     Dates: start: 20121011
  13. METFORMIN HYDROCHLORIDE [Concomitant]
     Dosage: 1000 MG, 2X/DAY
     Route: 048
     Dates: start: 20120823
  14. CELEXA [Concomitant]
     Dosage: 40 MG, 1 DAILY
     Route: 048
     Dates: start: 20110302
  15. LEVOTHYROXINE SODIUM [Concomitant]
     Dosage: 137 UG, 1 DAILY
     Route: 048
  16. PROCHLORPERAZINE MALEATE [Concomitant]
     Dosage: 10 MG, AS NEEDED 3 TIMES DAILY
     Route: 048
     Dates: start: 20121108
  17. FLUDROCORTISONE ACETATE [Concomitant]
     Dosage: 0.1 MG, 1/2 ORAL DAILY
     Route: 048
  18. HYDROCORTISONE [Concomitant]
     Indication: POSTOPERATIVE CARE
     Dosage: 20 MG, 1 IN AM AND 1/2 IN PM
     Route: 048
  19. HYDROCORTISONE [Concomitant]
     Dosage: 20 MG, 2X/DAY
  20. MAG-OX [Concomitant]
     Dosage: 400 MG, 1 DAILY
     Route: 048
  21. POTASSIUM CHLORIDE [Concomitant]
     Dosage: 20 MEQ, 1 DAILY
     Route: 048
     Dates: start: 20120913
  22. ACYCLOVIR [Concomitant]
     Dosage: 800 MG, 1/2 TWO TIMES DAILY
  23. BUSPAR [Concomitant]
     Indication: DEPRESSION
     Dosage: 10 MG, 1X/DAY

REACTIONS (9)
  - Stomatitis [Recovered/Resolved]
  - Oral pain [Unknown]
  - Weight decreased [Unknown]
  - Musculoskeletal discomfort [Unknown]
  - Gait disturbance [Unknown]
  - Blood thyroid stimulating hormone increased [Unknown]
  - Pain in extremity [Unknown]
  - Thyroid disorder [Not Recovered/Not Resolved]
  - Skin exfoliation [Not Recovered/Not Resolved]
